FAERS Safety Report 8568459-6 (Version None)
Quarter: 2012Q3

REPORT INFORMATION
  Report Type: 
  Country: None (occurrence: None)
  Receive Date: 20120803
  Receipt Date: 20120516
  Transmission Date: 20120928
  Serious: No
  Sender: FDA-Public Use
  Company Number: US-ABBOTT-12P-163-0935761-00

PATIENT
  Sex: Female
  Weight: 67.192 kg

DRUGS (5)
  1. NIASPAN [Suspect]
  2. ATENOLOL [Concomitant]
     Indication: PRODUCT USED FOR UNKNOWN INDICATION
  3. NIASPAN [Suspect]
     Indication: BLOOD CHOLESTEROL INCREASED
     Dosage: DRUG RESTATED
  4. LIPITOR [Concomitant]
     Indication: PRODUCT USED FOR UNKNOWN INDICATION
     Dates: end: 20120301
  5. PLAVIX [Concomitant]
     Indication: PRODUCT USED FOR UNKNOWN INDICATION

REACTIONS (8)
  - BLOOD CHOLESTEROL INCREASED [None]
  - HYPOAESTHESIA [None]
  - PAIN [None]
  - HEPATIC ENZYME INCREASED [None]
  - MOBILITY DECREASED [None]
  - PARAESTHESIA [None]
  - NEUROPATHY PERIPHERAL [None]
  - DISCOMFORT [None]
